FAERS Safety Report 24176622 (Version 1)
Quarter: 2024Q3

REPORT INFORMATION
  Report Type: Spontaneous
  Country: US (occurrence: US)
  Receive Date: 20240806
  Receipt Date: 20240806
  Transmission Date: 20241016
  Serious: No
  Sender: SANOFI AVENTIS
  Company Number: US-SA-SAC20240730001342

PATIENT
  Sex: Female
  Weight: 90.703 kg

DRUGS (2)
  1. DUPIXENT [Suspect]
     Active Substance: DUPILUMAB
     Indication: Dermatitis atopic
     Dosage: 300 MG, QOW
     Route: 058
  2. GRANIX [Concomitant]
     Active Substance: TBO-FILGRASTIM
     Dosage: UNK

REACTIONS (1)
  - White blood cell count decreased [Unknown]
